FAERS Safety Report 9543744 (Version 1)
Quarter: 2013Q3

REPORT INFORMATION
  Report Type: Spontaneous
  Country: US (occurrence: US)
  Receive Date: 20130923
  Receipt Date: 20130923
  Transmission Date: 20140515
  Serious: Yes (Other)
  Sender: FDA-Public Use
  Company Number: US-BAXTER-2013BAX036185

PATIENT
  Age: 61 Year
  Sex: Male

DRUGS (1)
  1. OSMITROL INJECTION (MANNITOL INJECTION, USP) [Suspect]
     Indication: INTRAOCULAR PRESSURE INCREASED
     Route: 042

REACTIONS (5)
  - Choking sensation [Recovered/Resolved]
  - Dyspnoea [Recovered/Resolved]
  - Cyanosis [Recovered/Resolved]
  - Loss of consciousness [Recovered/Resolved]
  - Apnoea [Recovered/Resolved]
